FAERS Safety Report 19827170 (Version 1)
Quarter: 2021Q3

REPORT INFORMATION
  Report Type: Spontaneous
  Country: JP (occurrence: JP)
  Receive Date: 20210914
  Receipt Date: 20210914
  Transmission Date: 20211014
  Serious: Yes (Hospitalization, Other)
  Sender: FDA-Public Use
  Company Number: JP-ALKEM LABORATORIES LIMITED-JP-ALKEM-2021-03176

PATIENT
  Age: 14 Year
  Sex: Female

DRUGS (10)
  1. PARACETAMOL [Suspect]
     Active Substance: ACETAMINOPHEN
     Indication: PYREXIA
  2. TRANEXAMIC ACID. [Suspect]
     Active Substance: TRANEXAMIC ACID
     Indication: NASOPHARYNGITIS
     Dosage: UNK
     Route: 065
  3. LACTOMIN [Suspect]
     Active Substance: DIETARY SUPPLEMENT\PROBIOTICS
     Indication: PYREXIA
  4. PARACETAMOL [Suspect]
     Active Substance: ACETAMINOPHEN
     Indication: NASOPHARYNGITIS
     Dosage: UNK
     Route: 065
  5. CEFDINIR. [Suspect]
     Active Substance: CEFDINIR
     Indication: NASOPHARYNGITIS
     Dosage: UNK
     Route: 065
  6. CEFDINIR. [Suspect]
     Active Substance: CEFDINIR
     Indication: PYREXIA
  7. LACTOMIN [Suspect]
     Active Substance: DIETARY SUPPLEMENT\PROBIOTICS
     Indication: NASOPHARYNGITIS
     Dosage: UNK
     Route: 065
  8. L?CARBOCYSTEINE [Suspect]
     Active Substance: CARBOCYSTEINE
     Indication: NASOPHARYNGITIS
     Dosage: UNK
     Route: 065
  9. TRANEXAMIC ACID. [Suspect]
     Active Substance: TRANEXAMIC ACID
     Indication: PYREXIA
  10. L?CARBOCYSTEINE [Suspect]
     Active Substance: CARBOCYSTEINE
     Indication: PYREXIA

REACTIONS (2)
  - Stevens-Johnson syndrome [Recovered/Resolved]
  - Acute hepatic failure [Recovered/Resolved]
